FAERS Safety Report 21048026 (Version 1)
Quarter: 2022Q3

REPORT INFORMATION
  Report Type: Spontaneous
  Country: US (occurrence: US)
  Receive Date: 20220706
  Receipt Date: 20220706
  Transmission Date: 20221027
  Serious: Yes (Other)
  Sender: FDA-Public Use
  Company Number: US-SA-SAC20220701002101

PATIENT
  Age: 21 Year
  Sex: Female

DRUGS (1)
  1. ZANTAC [Suspect]
     Active Substance: RANITIDINE HYDROCHLORIDE
     Indication: Dyspepsia
     Dosage: UNK FREQUENCY : OTHER
     Route: 065
     Dates: start: 198601, end: 199801

REACTIONS (6)
  - Breast cancer stage IV [Unknown]
  - Gastrointestinal carcinoma [Unknown]
  - Thyroid cancer stage III [Unknown]
  - Gastrointestinal neoplasm [Unknown]
  - Skin cancer [Unknown]
  - Cervix carcinoma stage II [Unknown]

NARRATIVE: CASE EVENT DATE: 19800101
